FAERS Safety Report 7490729-3 (Version None)
Quarter: 2011Q2

REPORT INFORMATION
  Report Type: 
  Country: None (occurrence: None)
  Receive Date: 20110519
  Receipt Date: 20091122
  Transmission Date: 20111010
  Serious: Yes (Death, Hospitalization, Other)
  Sender: FDA-Public Use
  Company Number: US-BAYER-200940498NA

PATIENT
  Age: 58 Year
  Sex: Female
  Weight: 85.261 kg

DRUGS (24)
  1. TRASYLOL [Suspect]
     Indication: AORTIC VALVE REPLACEMENT
  2. MUPIROCIN [Concomitant]
     Dosage: UNK
     Route: 042
     Dates: start: 20060706
  3. TOPROL-XL [Concomitant]
     Dosage: 50MG
     Route: 048
  4. NORVASC [Concomitant]
     Dosage: 5 MG / BID
     Route: 048
  5. PROCRIT [Concomitant]
     Route: 030
  6. NITROGLYCERIN [Concomitant]
     Dosage: UNK
     Route: 042
     Dates: start: 20060706
  7. PLASMALYTE 56 IN 5% DEXTROSE [Concomitant]
     Dosage: UNK
     Route: 042
     Dates: start: 20060706
  8. HEPARIN [Concomitant]
     Dosage: 51,000 UNITS
     Route: 042
     Dates: start: 20060706
  9. INDAPAMIDE [Concomitant]
     Dosage: 1.25 MG / DAILY
     Route: 048
  10. LISINOPRIL [Concomitant]
     Dosage: 40 MG / DAILY
     Route: 048
  11. PLAVIX [Concomitant]
     Dosage: 75MG
     Route: 048
  12. HUMULIN R [Concomitant]
     Dosage: COVERAGE CHART
     Route: 058
  13. HUMULIN R [Concomitant]
     Dosage: 20 UNITS OF NOVOLIN REGULAR
     Route: 042
     Dates: start: 20060706
  14. ACETYLSALICYLIC ACID SRT [Concomitant]
     Dosage: 81 MG / DAILY
     Route: 048
  15. LASIX [Concomitant]
     Route: 042
  16. BUMINATE [Concomitant]
     Dosage: 250
     Route: 042
     Dates: start: 20060706
  17. RED BLOOD CELLS [Concomitant]
     Dosage: 1 UNIT
     Route: 042
     Dates: start: 20060706, end: 20060706
  18. GLIMEPIRIDE [Concomitant]
     Dosage: 4 MG / DAILY
     Route: 048
  19. LOPRESSOR [Concomitant]
     Route: 048
  20. ZINACEF [Concomitant]
     Dosage: UNK
     Route: 042
     Dates: start: 20060706
  21. TRASYLOL [Suspect]
     Indication: CORONARY ARTERY BYPASS
     Dosage: 600 ML AT 0715 FOLLOWED BY 50 ML / HOUR
     Route: 042
     Dates: start: 20060706, end: 20060706
  22. VYTORIN [Concomitant]
     Dosage: 10/20
     Route: 048
  23. CEFTIN [Concomitant]
     Dosage: 1.5 GRAMS
     Route: 042
     Dates: start: 20060706
  24. WARFARIN SODIUM [Concomitant]
     Dosage: 5 MG
     Route: 048

REACTIONS (13)
  - RENAL FAILURE [None]
  - UNEVALUABLE EVENT [None]
  - ANHEDONIA [None]
  - INJURY [None]
  - RENAL INJURY [None]
  - EMOTIONAL DISTRESS [None]
  - ANXIETY [None]
  - RENAL IMPAIRMENT [None]
  - DEATH [None]
  - PAIN [None]
  - FEAR [None]
  - STRESS [None]
  - MULTI-ORGAN FAILURE [None]
